FAERS Safety Report 7284499-1 (Version None)
Quarter: 2011Q1

REPORT INFORMATION
  Report Type: 
  Country: None (occurrence: None)
  Receive Date: 20110209
  Receipt Date: 20110202
  Transmission Date: 20110831
  Serious: Yes (Hospitalization, Other)
  Sender: FDA-Public Use
  Company Number: US-RB-018837-09

PATIENT
  Sex: Female

DRUGS (4)
  1. TYLENOL-500 [Suspect]
     Indication: PRODUCT USED FOR UNKNOWN INDICATION
     Dosage: UNKNOWN DOSING INFORMATION
     Route: 065
     Dates: start: 20090807
  2. SUBOXONE [Suspect]
     Dosage: DOSE INCREASED (AMOUNT UNKNOWN)
     Route: 065
     Dates: start: 20090101
  3. SUBOXONE [Suspect]
     Indication: PRODUCT USED FOR UNKNOWN INDICATION
     Dosage: VARIOUS DOSES INCLUDING WEANING DOWN
     Route: 065
     Dates: end: 20090101
  4. SUBOXONE [Suspect]
     Dosage: UNKNOWN DOSING INFORMATION
     Route: 065
     Dates: start: 20090807

REACTIONS (9)
  - OVARIAN MASS [None]
  - OVERDOSE [None]
  - TOXICITY TO VARIOUS AGENTS [None]
  - DRUG DEPENDENCE [None]
  - NEPHROLITHIASIS [None]
  - HEPATIC ENZYME INCREASED [None]
  - ANXIETY [None]
  - OVARIAN CYST [None]
  - DRUG WITHDRAWAL SYNDROME [None]
